FAERS Safety Report 7086742-0 (Version None)
Quarter: 2010Q4

REPORT INFORMATION
  Report Type: 
  Country: None (occurrence: None)
  Receive Date: 20101105
  Receipt Date: 20101025
  Transmission Date: 20110411
  Serious: Yes (Hospitalization, Other)
  Sender: FDA-Public Use
  Company Number: US-ELI_LILLY_AND_COMPANY-US201008005021

PATIENT
  Age: 69 Year
  Sex: Male

DRUGS (5)
  1. HUMULIN 70/30 [Suspect]
     Indication: TYPE 2 DIABETES MELLITUS
     Dosage: 30 U, 2/D
     Dates: start: 19800101
  2. HUMULIN 70/30 [Suspect]
     Dosage: 30 U, 2/D
     Dates: start: 19800101
  3. HUMULIN R [Suspect]
     Indication: TYPE 2 DIABETES MELLITUS
     Dosage: UNK, AS NEEDED
     Dates: start: 20090101
  4. HUMULIN R [Suspect]
     Dosage: UNK, AS NEEDED
     Dates: start: 20090101
  5. NOVOLOG [Concomitant]

REACTIONS (6)
  - BLOOD GLUCOSE DECREASED [None]
  - HOSPITALISATION [None]
  - MALAISE [None]
  - PRESYNCOPE [None]
  - VASCULAR GRAFT [None]
  - WRONG DRUG ADMINISTERED [None]
